FAERS Safety Report 9551249 (Version 1)
Quarter: 2013Q3

REPORT INFORMATION
  Report Type: Report from Study
  Country: CN (occurrence: CN)
  Receive Date: 20130925
  Receipt Date: 20130925
  Transmission Date: 20140515
  Serious: Yes (Hospitalization)
  Sender: FDA-Public Use
  Company Number: CN-ROCHE-1280327

PATIENT
  Age: 46 Year
  Sex: Female

DRUGS (2)
  1. PEGASYS [Suspect]
     Indication: HEPATITIS C
     Route: 058
     Dates: start: 201307, end: 201308
  2. PEGASYS [Suspect]
     Route: 058
     Dates: start: 201308, end: 201308

REACTIONS (1)
  - Platelet count decreased [Not Recovered/Not Resolved]
